FAERS Safety Report 6291560-7 (Version None)
Quarter: 2009Q3

REPORT INFORMATION
  Report Type: 
  Country: None (occurrence: None)
  Receive Date: 20090730
  Receipt Date: 20090721
  Transmission Date: 20100115
  Serious: Yes (Other)
  Sender: FDA-Public Use
  Company Number: PHHY2009FR30807

PATIENT
  Age: 88 Year
  Sex: Female

DRUGS (2)
  1. EXELON [Suspect]
     Indication: AMNESIA
     Dosage: 1.5 MG, BID
     Route: 048
     Dates: start: 20090630
  2. EXELON [Suspect]
     Dosage: 9 MG IN 2 DAYS
     Dates: end: 20090702

REACTIONS (4)
  - DIARRHOEA [None]
  - INCORRECT DRUG ADMINISTRATION RATE [None]
  - MALAISE [None]
  - NAUSEA [None]
